FAERS Safety Report 19603791 (Version 1)
Quarter: 2021Q3

REPORT INFORMATION
  Report Type: Spontaneous
  Country: US (occurrence: US)
  Receive Date: 20210723
  Receipt Date: 20210723
  Transmission Date: 20211014
  Serious: Yes (Other)
  Sender: FDA-Public Use
  Company Number: US-ORGANON-O2107USA001244

PATIENT
  Age: 41 Year
  Sex: Female

DRUGS (2)
  1. MENOPUR [Concomitant]
     Active Substance: FOLLITROPIN\LUTEINIZING HORMONE
     Dosage: UNK
     Dates: start: 20210622
  2. FOLLISTIM AQ [Suspect]
     Active Substance: FOLLITROPIN
     Indication: INFERTILITY FEMALE
     Dosage: 600 IU/0.72 ML (300 UNITS DAILY)
     Route: 058
     Dates: start: 20210622

REACTIONS (2)
  - Abdominal discomfort [Unknown]
  - Injection site bruising [Unknown]

NARRATIVE: CASE EVENT DATE: 20210626
